FAERS Safety Report 15377799 (Version 1)
Quarter: 2018Q3

REPORT INFORMATION
  Report Type: Spontaneous
  Country: US (occurrence: US)
  Receive Date: 20180913
  Receipt Date: 20180913
  Transmission Date: 20181010
  Serious: No
  Sender: FDA-Public Use
  Company Number: US-SA-2018SA254204

PATIENT
  Sex: Female

DRUGS (23)
  1. ATENOLOL. [Concomitant]
     Active Substance: ATENOLOL
     Dosage: TAB 50MG
  2. LINZESS [Concomitant]
     Active Substance: LINACLOTIDE
     Dosage: CAP 145 MCG
  3. SYNTHROID [Concomitant]
     Active Substance: LEVOTHYROXINE SODIUM
     Dosage: TAB 50 MCG
  4. MECLIZINE HYDROCHLORIDE. [Concomitant]
     Active Substance: MECLIZINE HYDROCHLORIDE
     Dosage: TAB 12.5 MG
  5. FLUTICASONE. [Concomitant]
     Active Substance: FLUTICASONE
     Dosage: 50 MCG
  6. CARBAMAZEPIN [Concomitant]
     Active Substance: CARBAMAZEPINE
     Dosage: TAB 200 MG ER
  7. VENTOLIN HFA [Concomitant]
     Active Substance: ALBUTEROL SULFATE
     Dosage: AER
  8. MONTELUKAST [Concomitant]
     Active Substance: MONTELUKAST SODIUM
     Dosage: TAB 10 MG
  9. ESOMEPRA [Concomitant]
     Active Substance: ESOMEPRAZOLE
     Dosage: CAP 40 MG DR
  10. FLOVENT [Concomitant]
     Active Substance: FLUTICASONE PROPIONATE
     Dosage: AER 110 MCG
  11. CELECOXIB. [Concomitant]
     Active Substance: CELECOXIB
     Dosage: CAP 100MG
  12. METOCLOPRAM [Concomitant]
     Active Substance: METOCLOPRAMIDE
     Dosage: TAB 5MG
  13. ALIROCUMAB PREFILLED PEN [Suspect]
     Active Substance: ALIROCUMAB
     Indication: OSTEOPOROSIS
     Dosage: 150 MG, QOW
     Route: 058
  14. LOSARTAN. [Concomitant]
     Active Substance: LOSARTAN
     Dosage: POT TAB 50 MG
  15. CLARINEX [Concomitant]
     Active Substance: DESLORATADINE
     Dosage: TAB 5MG
  16. FORTEO [Concomitant]
     Active Substance: TERIPARATIDE
  17. PRALUENT [Suspect]
     Active Substance: ALIROCUMAB
     Indication: OSTEOPOROSIS
     Dosage: 150 MG, QOW
     Route: 058
  18. ALPRAZOLAM. [Concomitant]
     Active Substance: ALPRAZOLAM
     Dosage: 0.5 MG TAB
  19. MIRTAZAPINE. [Concomitant]
     Active Substance: MIRTAZAPINE
     Dosage: TAB 30MG
  20. ORPHENADRINE [Concomitant]
     Active Substance: ORPHENADRINE
     Dosage: TAB 100 MG ER
  21. PENTOXIFYLLIN [Concomitant]
     Active Substance: PENTOXIFYLLINE
     Dosage: TAB 400  MG ER
  22. PREDNISONE. [Concomitant]
     Active Substance: PREDNISONE
     Dosage: TAB 20 MG
  23. PROAIR HFA [Concomitant]
     Active Substance: ALBUTEROL SULFATE

REACTIONS (2)
  - Nausea [Recovered/Resolved]
  - Vomiting [Recovered/Resolved]
